FAERS Safety Report 9639379 (Version 1)
Quarter: 2013Q4

REPORT INFORMATION
  Report Type: Spontaneous
  Country: US (occurrence: US)
  Receive Date: 20131022
  Receipt Date: 20131022
  Transmission Date: 20140711
  Serious: Yes (Other)
  Sender: FDA-Public Use
  Company Number: US-TEVA-439557USA

PATIENT
  Age: 25 Year
  Sex: Female
  Weight: 79.9 kg

DRUGS (3)
  1. PARAGARD 380A [Suspect]
     Indication: CONTRACEPTION
     Route: 015
     Dates: start: 20130726, end: 20131018
  2. ZOLOFT [Concomitant]
     Indication: ANXIETY
  3. ZOLOFT [Concomitant]
     Indication: DEPRESSION

REACTIONS (3)
  - Device dislocation [Recovered/Resolved]
  - Dysmenorrhoea [Unknown]
  - Menorrhagia [Unknown]
